FAERS Safety Report 7185868-0 (Version None)
Quarter: 2010Q4

REPORT INFORMATION
  Report Type: 
  Country: None (occurrence: None)
  Receive Date: 20101222
  Receipt Date: 20100610
  Transmission Date: 20110411
  Serious: No
  Sender: FDA-Public Use
  Company Number: US-AMGEN-KDL417644

PATIENT

DRUGS (13)
  1. ENBREL [Suspect]
     Indication: PRODUCT USED FOR UNKNOWN INDICATION
     Dosage: 50 MG, QWK
     Route: 058
  2. LORSARTAN POTASSIUM HYDROCHLORIDE [Concomitant]
     Dosage: 12.5 MG, UNK
     Route: 048
  3. METHOTREXATE [Concomitant]
     Dosage: 2.5 MG, UNK
     Route: 048
  4. LEVOTHYROXINE SODIUM [Concomitant]
     Dosage: 100 A?G, UNK
     Route: 048
  5. PIROXICAM [Concomitant]
     Dosage: 10 MG, UNK
     Route: 048
  6. FOLIC ACID [Concomitant]
     Dosage: 1 MG, UNK
     Route: 048
  7. METOPROLOL [Concomitant]
     Dosage: 25 MG, UNK
     Route: 048
  8. ROSUVASTATIN CALCIUM [Concomitant]
     Dosage: 10 MG, UNK
     Route: 048
  9. PIOGLITAZONE HCL [Concomitant]
     Dosage: 15 MG, UNK
     Route: 048
  10. CALCIUM/VITAMINS NOS [Concomitant]
     Dosage: UNK UNK, UNK
     Route: 048
  11. MULTI-VITAMINS [Concomitant]
  12. ACETAMINOPHEN [Concomitant]
     Dosage: 325 MG, UNK
     Route: 048
  13. ACETYLSALICYLIC ACID [Concomitant]
     Dosage: 81 MG, UNK

REACTIONS (3)
  - INJECTION SITE ERYTHEMA [None]
  - INJECTION SITE REACTION [None]
  - INJECTION SITE SWELLING [None]
